FAERS Safety Report 9297436 (Version 1)
Quarter: 2013Q2

REPORT INFORMATION
  Report Type: Spontaneous
  Country: US (occurrence: None)
  Receive Date: 20130517
  Receipt Date: 20130517
  Transmission Date: 20140414
  Serious: Yes (Other)
  Sender: FDA-Public Use
  Company Number: None

PATIENT
  Age: 75 Year
  Sex: Male
  Weight: 82.56 kg

DRUGS (1)
  1. METFORMIN [Suspect]

REACTIONS (3)
  - Product taste abnormal [None]
  - Product odour abnormal [None]
  - Product quality issue [None]
